FAERS Safety Report 24535816 (Version 1)
Quarter: 2024Q4

REPORT INFORMATION
  Report Type: Spontaneous
  Country: CN (occurrence: CN)
  Receive Date: 20241022
  Receipt Date: 20241022
  Transmission Date: 20250114
  Serious: Yes (Hospitalization, Other)
  Sender: SANOFI AVENTIS
  Company Number: CN-SA-2024SA299032

PATIENT
  Age: 69 Year
  Sex: Male
  Weight: 82 kg

DRUGS (12)
  1. PLAVIX [Suspect]
     Active Substance: CLOPIDOGREL BISULFATE
     Indication: Platelet aggregation inhibition
     Dosage: 75 MG, QD(DOSE75.000000DOSE UNITMGNUMBER OF USE1DAY NUMBER OF USE1ROUTE OF ADMINISTRATIONPOSTART TIM
     Route: 058
     Dates: start: 20150101, end: 20241013
  2. ASPIRIN [Suspect]
     Active Substance: ASPIRIN
     Indication: Platelet aggregation inhibition
     Dosage: 100 MG, QD
     Route: 048
     Dates: start: 20150215, end: 20241013
  3. PARACETAMOL, AMINOPHENAZONE, CAFFEINE AND CHLORPHENAMINE MALEATE [Concomitant]
     Indication: Antipyresis
     Dosage: 1 DF, TID
     Route: 048
     Dates: start: 20241003, end: 20241006
  4. PARACETAMOL, AMINOPHENAZONE, CAFFEINE AND CHLORPHENAMINE MALEATE [Concomitant]
     Indication: Analgesic therapy
  5. PARACETAMOL, AMINOPHENAZONE, CAFFEINE AND CHLORPHENAMINE MALEATE [Concomitant]
     Indication: Headache
  6. PARACETAMOL, AMINOPHENAZONE, CAFFEINE AND CHLORPHENAMINE MALEATE [Concomitant]
     Indication: Nasopharyngitis
  7. PARACETAMOL, AMINOPHENAZONE, CAFFEINE AND CHLORPHENAMINE MALEATE [Concomitant]
     Indication: Productive cough
  8. ACETAMINOPHEN\ASPIRIN\CAFFEINE\CODEINE PHOSPHATE [Concomitant]
     Active Substance: ACETAMINOPHEN\ASPIRIN\CAFFEINE\CODEINE PHOSPHATE
     Indication: Antipyresis
     Dosage: 1 BAG, BID
     Route: 048
     Dates: start: 20241001, end: 20241002
  9. ACETAMINOPHEN\ASPIRIN\CAFFEINE\CODEINE PHOSPHATE [Concomitant]
     Active Substance: ACETAMINOPHEN\ASPIRIN\CAFFEINE\CODEINE PHOSPHATE
     Indication: Analgesic therapy
  10. ACETAMINOPHEN\ASPIRIN\CAFFEINE\CODEINE PHOSPHATE [Concomitant]
     Active Substance: ACETAMINOPHEN\ASPIRIN\CAFFEINE\CODEINE PHOSPHATE
     Indication: Headache
  11. ACETAMINOPHEN\ASPIRIN\CAFFEINE\CODEINE PHOSPHATE [Concomitant]
     Active Substance: ACETAMINOPHEN\ASPIRIN\CAFFEINE\CODEINE PHOSPHATE
     Indication: Nasopharyngitis
  12. ACETAMINOPHEN\ASPIRIN\CAFFEINE\CODEINE PHOSPHATE [Concomitant]
     Active Substance: ACETAMINOPHEN\ASPIRIN\CAFFEINE\CODEINE PHOSPHATE
     Indication: Productive cough

REACTIONS (11)
  - Amaurosis [Recovering/Resolving]
  - Upper gastrointestinal haemorrhage [Recovering/Resolving]
  - Melaena [Recovering/Resolving]
  - Dizziness [Recovering/Resolving]
  - Palpitations [Recovering/Resolving]
  - Hyperhidrosis [Recovering/Resolving]
  - Dysstasia [Recovering/Resolving]
  - Asthenia [Recovering/Resolving]
  - Hypotension [Recovering/Resolving]
  - Peripheral coldness [Recovering/Resolving]
  - Pallor [Recovering/Resolving]

NARRATIVE: CASE EVENT DATE: 20241001
